FAERS Safety Report 8814698 (Version 2)
Quarter: 2012Q4

REPORT INFORMATION
  Report Type: Spontaneous
  Country: IN (occurrence: None)
  Receive Date: 20120926
  Receipt Date: 20121004
  Transmission Date: 20130627
  Serious: Yes (Hospitalization, Other)
  Sender: FDA-Public Use
  Company Number: AUR-APL-2012-04129

PATIENT
  Age: 37 Year
  Sex: Male

DRUGS (7)
  1. TOPIRAMATE [Suspect]
     Indication: MIGRAINE PROPHYLAXIS
  2. TOPIRAMATE [Suspect]
     Indication: MIGRAINE PROPHYLAXIS
  3. TOPIRAMATE [Suspect]
     Indication: MIGRAINE PROPHYLAXIS
  4. TOPIRAMATE [Suspect]
     Indication: MIGRAINE PROPHYLAXIS
  5. TOPIRAMATE [Suspect]
     Indication: MIGRAINE PROPHYLAXIS
  6. VALPROATE [Suspect]
     Indication: MIGRAINE PROPHYLAXIS
     Dosage: over 4 hours (500 mg, 4 hr), Intravenous
     Route: 042
  7. VALPROATE [Suspect]
     Indication: MIGRAINE PROPHYLAXIS

REACTIONS (6)
  - Headache [None]
  - Vomiting [None]
  - Somnolence [None]
  - Hepatotoxicity [None]
  - Idiosyncratic drug reaction [None]
  - Hyperammonaemic encephalopathy [None]
